FAERS Safety Report 4799393-5 (Version None)
Quarter: 2005Q4

REPORT INFORMATION
  Report Type: 
  Country: None (occurrence: None)
  Receive Date: 20051013
  Receipt Date: 20050928
  Transmission Date: 20060501
  Serious: Yes (Other)
  Sender: FDA-Public Use
  Company Number: 2005136410

PATIENT
  Age: 39 Year
  Sex: Female

DRUGS (1)
  1. VFEND [Suspect]
     Indication: ASPERGILLOSIS
     Dosage: INTRAVENOUS
     Route: 042

REACTIONS (4)
  - HALLUCINATION [None]
  - INSOMNIA [None]
  - NIGHTMARE [None]
  - SLEEP TERROR [None]
